FAERS Safety Report 18780148 (Version 1)
Quarter: 2021Q1

REPORT INFORMATION
  Report Type: Other
  Country: GB (occurrence: GB)
  Receive Date: 20210125
  Receipt Date: 20210125
  Transmission Date: 20210419
  Serious: Yes (Other)
  Sender: FDA-Public Use
  Company Number: GB-ASTELLAS-2021US002607

PATIENT
  Age: 77 Year
  Sex: Male

DRUGS (9)
  1. ESLICARBAZEPINE [Interacting]
     Active Substance: ESLICARBAZEPINE
     Indication: EPILEPSY
     Dosage: UNK UNK400MG INCREASING FROM THERE TO 600MG THEN REVIEW
     Route: 048
     Dates: start: 20200812
  2. PREDNISOLONE. [Concomitant]
     Active Substance: PREDNISOLONE
     Indication: PRODUCT USED FOR UNKNOWN INDICATION
     Route: 065
  3. CELLCEPT [Concomitant]
     Active Substance: MYCOPHENOLATE MOFETIL\MYCOPHENOLATE MOFETIL HYDROCHLORIDE
     Indication: PRODUCT USED FOR UNKNOWN INDICATION
     Route: 065
  4. TACROLIMUS. [Suspect]
     Active Substance: TACROLIMUS
     Indication: SOLID ORGAN TRANSPLANT
     Route: 048
     Dates: start: 20011101
  5. CREON [Concomitant]
     Active Substance: PANCRELIPASE AMYLASE\PANCRELIPASE LIPASE\PANCRELIPASE PROTEASE
     Indication: PRODUCT USED FOR UNKNOWN INDICATION
     Dosage: WITH FOOD 3 WITH MAIN MEALS/4 WITH PUDDINGS/2 WITH SNACKS, UNKNOWN FREQ.
     Route: 065
  6. CLONAZEPAM. [Concomitant]
     Active Substance: CLONAZEPAM
     Indication: PRODUCT USED FOR UNKNOWN INDICATION
     Dosage: 500 ?G, ONCE DAILY AT NIGHT
     Route: 065
  7. EPILIM [Interacting]
     Active Substance: VALPROATE SODIUM
     Indication: EPILEPSY
     Route: 048
     Dates: end: 20200812
  8. ATROVENT [Concomitant]
     Active Substance: IPRATROPIUM BROMIDE
     Indication: PRODUCT USED FOR UNKNOWN INDICATION
     Dosage: 2 PUFFS DF, UNKNOWN FREQ.
     Route: 065
  9. TACROLIMUS. [Interacting]
     Active Substance: TACROLIMUS
     Route: 065

REACTIONS (3)
  - Drug level below therapeutic [Unknown]
  - Drug interaction [Recovered/Resolved]
  - Immunosuppressant drug level decreased [Unknown]

NARRATIVE: CASE EVENT DATE: 202008
